FAERS Safety Report 5368644-0 (Version None)
Quarter: 2007Q2

REPORT INFORMATION
  Report Type: 
  Country: None (occurrence: None)
  Receive Date: 20070625
  Receipt Date: 20070614
  Transmission Date: 20071010
  Serious: Yes (Hospitalization)
  Sender: FDA-Public Use
  Company Number: DE-AMGEN-UK226329

PATIENT
  Sex: Female

DRUGS (8)
  1. ARANESP [Suspect]
     Indication: RENAL FAILURE CHRONIC
     Route: 042
     Dates: start: 20030101
  2. METOPROLOL SUCCINATE [Concomitant]
     Route: 048
  3. CAPTOPRIL [Concomitant]
     Route: 048
  4. OMEPRAZOLE [Concomitant]
     Route: 048
  5. CALCIUM ACETATE [Concomitant]
     Route: 048
  6. DIGITOXIN TAB [Concomitant]
     Route: 048
  7. VITARENAL [Concomitant]
     Route: 048
  8. MARCUMAR [Concomitant]
     Route: 048

REACTIONS (2)
  - SHUNT OCCLUSION [None]
  - SHUNT THROMBOSIS [None]
